FAERS Safety Report 8183352-9 (Version None)
Quarter: 2012Q1

REPORT INFORMATION
  Report Type: 
  Country: None (occurrence: None)
  Receive Date: 20120305
  Receipt Date: 20120221
  Transmission Date: 20120608
  Serious: Yes (Other)
  Sender: FDA-Public Use
  Company Number: US-ELI_LILLY_AND_COMPANY-US201202006581

PATIENT
  Sex: Female

DRUGS (2)
  1. HUMALOG [Suspect]
     Indication: DIABETES MELLITUS
     Dosage: 6 U, OTHER
     Dates: start: 20110101
  2. LANTUS [Concomitant]
     Dosage: UNK

REACTIONS (2)
  - BLOOD GLUCOSE INCREASED [None]
  - DRUG DOSE OMISSION [None]
